FAERS Safety Report 8307085-0 (Version None)
Quarter: 2012Q2

REPORT INFORMATION
  Report Type: 
  Country: None (occurrence: None)
  Receive Date: 20120424
  Receipt Date: 20120414
  Transmission Date: 20120825
  Serious: Yes (Hospitalization, Other)
  Sender: FDA-Public Use
  Company Number: SG-JNJFOC-20120405494

PATIENT
  Age: 69 Year
  Sex: Male
  Weight: 60 kg

DRUGS (12)
  1. ATORVASTATIN [Concomitant]
  2. ISOSORBIDE DINITRATE [Concomitant]
  3. VASTAREL [Concomitant]
  4. RIVAROXABAN [Suspect]
     Indication: CEREBROVASCULAR ACCIDENT PROPHYLAXIS
     Route: 048
     Dates: start: 20120326, end: 20120403
  5. ENALAPRIL MALEATE [Concomitant]
  6. RIVAROXABAN [Suspect]
     Indication: ATRIAL FIBRILLATION
     Route: 048
     Dates: start: 20120326, end: 20120403
  7. RIVAROXABAN [Suspect]
     Route: 048
     Dates: start: 20120401
  8. DIGOXIN [Concomitant]
  9. RIVAROXABAN [Suspect]
     Route: 048
     Dates: start: 20120401
  10. AMIODARONE HCL [Concomitant]
  11. DILTIAZEM HCL [Concomitant]
  12. PROTON PUMP INHIBITOR [Concomitant]

REACTIONS (4)
  - GASTROINTESTINAL HAEMORRHAGE [None]
  - DYSPNOEA [None]
  - HAEMOPTYSIS [None]
  - ANAEMIA [None]
